FAERS Safety Report 13826307 (Version 2)
Quarter: 2017Q3

REPORT INFORMATION
  Report Type: Spontaneous
  Country: GB (occurrence: GB)
  Receive Date: 20170802
  Receipt Date: 20170811
  Transmission Date: 20171127
  Serious: Yes (Other)
  Sender: FDA-Public Use
  Company Number: GB-TEVA-790734ACC

PATIENT
  Age: 68 Year
  Sex: Female

DRUGS (4)
  1. RIFINAH [Suspect]
     Active Substance: ISONIAZID\RIFAMPIN
     Route: 065
     Dates: start: 20170305, end: 20170329
  2. ISONIAZID. [Suspect]
     Active Substance: ISONIAZID
     Route: 065
     Dates: start: 20170305, end: 20170329
  3. PREDNISOLONE. [Suspect]
     Active Substance: PREDNISOLONE
     Indication: DISSEMINATED BACILLUS CALMETTE-GUERIN INFECTION
     Route: 065
     Dates: start: 20170305
  4. ETHAMBUTOL [Suspect]
     Active Substance: ETHAMBUTOL HYDROCHLORIDE
     Route: 065
     Dates: start: 20170305

REACTIONS (1)
  - Transaminases increased [Unknown]
